FAERS Safety Report 7402303-5 (Version None)
Quarter: 2011Q2

REPORT INFORMATION
  Report Type: 
  Country: None (occurrence: None)
  Receive Date: 20110408
  Receipt Date: 20110406
  Transmission Date: 20111010
  Serious: No
  Sender: FDA-Public Use
  Company Number: US-PFIZER INC-2011076887

PATIENT
  Sex: Male
  Weight: 77.1 kg

DRUGS (4)
  1. AMLODIPINE BESYLATE [Suspect]
     Dosage: 5 MG, 1X/DAY
  2. AMLODIPINE BESYLATE [Suspect]
     Dosage: 10 MG, 1X/DAY
     Dates: start: 20110101
  3. WARFARIN [Concomitant]
     Indication: CEREBROVASCULAR ACCIDENT
     Dosage: UNK
     Dates: start: 19950101
  4. AMLODIPINE BESYLATE [Suspect]
     Indication: HYPERTENSION
     Dosage: 2.5 MG, 1X/DAY
     Route: 048
     Dates: start: 20100901

REACTIONS (1)
  - RASH [None]
